FAERS Safety Report 8381938-X (Version None)
Quarter: 2012Q2

REPORT INFORMATION
  Report Type: 
  Country: None (occurrence: None)
  Receive Date: 20120522
  Receipt Date: 20120522
  Transmission Date: 20120825
  Serious: Yes (Other)
  Sender: FDA-Public Use
  Company Number: None

PATIENT
  Age: 8 Year
  Sex: Male
  Weight: 30.8446 kg

DRUGS (1)
  1. INTUNIV [Suspect]
     Indication: ATTENTION DEFICIT/HYPERACTIVITY DISORDER
     Dosage: 3 MG AT BEDTIME
     Dates: start: 20120505, end: 20120519

REACTIONS (3)
  - INSOMNIA [None]
  - HALLUCINATIONS, MIXED [None]
  - MIDDLE INSOMNIA [None]
